FAERS Safety Report 26120456 (Version 1)
Quarter: 2025Q4

REPORT INFORMATION
  Report Type: Spontaneous
  Country: US (occurrence: US)
  Receive Date: 20251204
  Receipt Date: 20251204
  Transmission Date: 20260119
  Serious: No
  Sender: ACCORD
  Company Number: US-Accord-484291

PATIENT
  Age: 77 Year
  Sex: Female

DRUGS (1)
  1. LEVOTHYROXINE [Suspect]
     Active Substance: LEVOTHYROXINE
     Indication: Hypothyroidism
     Dosage: BY MOUTH, DAILY

REACTIONS (2)
  - Fatigue [Unknown]
  - Product measured potency issue [Unknown]
